FAERS Safety Report 6093342-8 (Version None)
Quarter: 2009Q1

REPORT INFORMATION
  Report Type: 
  Country: None (occurrence: None)
  Receive Date: 20090226
  Receipt Date: 20080502
  Transmission Date: 20090719
  Serious: No
  Sender: FDA-Public Use
  Company Number: A0726344A

PATIENT
  Sex: Male

DRUGS (2)
  1. ABACAVIR [Suspect]
     Indication: DRUG USE FOR UNKNOWN INDICATION
  2. RALTEGRAVIR [Suspect]
     Indication: DRUG USE FOR UNKNOWN INDICATION

REACTIONS (2)
  - PYREXIA [None]
  - RASH GENERALISED [None]
